FAERS Safety Report 20869317 (Version 1)
Quarter: 2022Q2

REPORT INFORMATION
  Report Type: Spontaneous
  Country: JP (occurrence: JP)
  Receive Date: 20220524
  Receipt Date: 20220524
  Transmission Date: 20220721
  Serious: Yes (Hospitalization, Other)
  Sender: FDA-Public Use
  Company Number: JP-MSD-M2022-15742

PATIENT
  Age: 92 Year
  Sex: Female

DRUGS (1)
  1. MOLNUPIRAVIR [Suspect]
     Active Substance: MOLNUPIRAVIR
     Indication: COVID-19 treatment
     Dosage: 800 MILLIGRAM, BID
     Route: 048
     Dates: start: 20220205, end: 20220208

REACTIONS (3)
  - Pneumonia [Recovering/Resolving]
  - Intentional dose omission [Unknown]
  - Product use complaint [Unknown]

NARRATIVE: CASE EVENT DATE: 20220201
